FAERS Safety Report 6938204-6 (Version None)
Quarter: 2010Q3

REPORT INFORMATION
  Report Type: 
  Country: None (occurrence: None)
  Receive Date: 20100824
  Receipt Date: 20100812
  Transmission Date: 20110219
  Serious: Yes (Hospitalization)
  Sender: FDA-Public Use
  Company Number: PHFR2010IE00487

PATIENT
  Sex: Male

DRUGS (8)
  1. CLOZARIL [Suspect]
     Indication: SCHIZOPHRENIA
     Dosage: 450 MG, TID
     Route: 048
     Dates: start: 19960610
  2. CLOZARIL [Suspect]
     Indication: PSYCHOTIC DISORDER
  3. ABILIFY [Concomitant]
     Indication: PSYCHOTIC DISORDER
     Dosage: 10 MG, QHS
     Route: 048
  4. ANDROCUR [Concomitant]
     Dosage: 50 MG, BID
     Route: 048
  5. MIRTAZAPINE [Concomitant]
     Indication: DEPRESSION
     Dosage: 15 MG, QHS
     Route: 048
  6. DULOXETINE HYDROCHLORIDE [Concomitant]
     Dosage: 120 MG, QD
     Route: 048
  7. VALPROATE SODIUM [Concomitant]
     Dosage: 600 MG, BID
     Route: 048
  8. STILNOCT [Concomitant]
     Dosage: 10 MG, QHS
     Route: 048

REACTIONS (3)
  - MENTAL DISORDER [None]
  - PSYCHOTIC DISORDER [None]
  - SUICIDAL IDEATION [None]
